FAERS Safety Report 7018617-7 (Version None)
Quarter: 2010Q3

REPORT INFORMATION
  Report Type: 
  Country: None (occurrence: None)
  Receive Date: 20100924
  Receipt Date: 20100909
  Transmission Date: 20110219
  Serious: Yes (Other)
  Sender: FDA-Public Use
  Company Number: TUK2010A00209

PATIENT
  Age: 64 Year
  Sex: Female

DRUGS (3)
  1. ACTOS [Suspect]
     Indication: TYPE 2 DIABETES MELLITUS
     Dosage: 15 MG 915 MG), 30 MG (30 MG), ORAL
     Route: 048
     Dates: start: 20100415, end: 20100430
  2. LANTUS [Suspect]
     Indication: TYPE 2 DIABETES MELLITUS
     Dosage: 30 IU (30 IU, 1 IN 1 D), SUBCUTANEOUS
     Route: 058
     Dates: start: 20091101
  3. NOVOLOG [Concomitant]

REACTIONS (2)
  - CHLOROPSIA [None]
  - HYPOGLYCAEMIA [None]
